FAERS Safety Report 13989090 (Version 1)
Quarter: 2017Q3

REPORT INFORMATION
  Report Type: Spontaneous
  Country: SE (occurrence: SE)
  Receive Date: 20170920
  Receipt Date: 20170920
  Transmission Date: 20171128
  Serious: Yes (Other)
  Sender: FDA-Public Use
  Company Number: SE-BAYER-2017-172991

PATIENT
  Age: 89 Year
  Sex: Female

DRUGS (1)
  1. CIPROXIN 500/5 MG/ML [Suspect]
     Active Substance: CIPROFLOXACIN
     Indication: URINARY TRACT INFECTION
     Dosage: 1000 MG IN THE EVENING AND 500 MG IN THE MORNING
     Dates: start: 20170905, end: 20170906

REACTIONS (4)
  - Depressed level of consciousness [Recovering/Resolving]
  - Somnolence [Recovering/Resolving]
  - Altered state of consciousness [Recovering/Resolving]
  - Hypophagia [Recovering/Resolving]

NARRATIVE: CASE EVENT DATE: 20170906
